FAERS Safety Report 8174068-3 (Version None)
Quarter: 2012Q1

REPORT INFORMATION
  Report Type: 
  Country: None (occurrence: None)
  Receive Date: 20120229
  Receipt Date: 20120222
  Transmission Date: 20120608
  Serious: Yes (Hospitalization)
  Sender: FDA-Public Use
  Company Number: US-GENZYME-RENA-1001460

PATIENT

DRUGS (1)
  1. RENVELA [Suspect]
     Indication: HYPERPHOSPHATAEMIA
     Dosage: 0.8 G, 1 TO 3 TABLETS WITH MEALS, BASED ON FOOD INTAKE
     Route: 048

REACTIONS (2)
  - MEDICAL DEVICE COMPLICATION [None]
  - PLATELET COUNT DECREASED [None]
